FAERS Safety Report 17696792 (Version 1)
Quarter: 2020Q2

REPORT INFORMATION
  Report Type: Spontaneous
  Country: DE (occurrence: DE)
  Receive Date: 20200423
  Receipt Date: 20200423
  Transmission Date: 20200714
  Serious: Yes (Other)
  Sender: FDA-Public Use
  Company Number: DE-AUROBINDO-AUR-APL-2020-019918

PATIENT
  Sex: Male
  Weight: 130 kg

DRUGS (15)
  1. VALSARTAN DURA [Suspect]
     Active Substance: VALSARTAN
     Dosage: 80 MILLIGRAM, ONCE A DAY
     Route: 065
     Dates: start: 20160818, end: 201710
  2. LEVOTHYROXINE SODIUM. [Concomitant]
     Active Substance: LEVOTHYROXINE SODIUM
     Indication: THYROID DISORDER
     Dosage: UNK, ONCE A DAY (1-0-0-0 )
     Route: 065
  3. CANDESARTAN CILEXETIL. [Suspect]
     Active Substance: CANDESARTAN CILEXETIL
     Indication: PRODUCT USED FOR UNKNOWN INDICATION
     Dosage: UNK
     Route: 065
     Dates: start: 201911
  4. VALSARTAN DURA [Suspect]
     Active Substance: VALSARTAN
     Dosage: 80 MILLIGRAM, ONCE A DAY
     Route: 065
     Dates: start: 201902, end: 201905
  5. RIVAROXABAN [Concomitant]
     Active Substance: RIVAROXABAN
     Indication: BLOOD COUNT ABNORMAL
     Dosage: UNK, ONCE A DAY (1-0-0-0)
     Route: 065
  6. ALLOPURINOL. [Concomitant]
     Active Substance: ALLOPURINOL
     Indication: BLOOD URIC ACID ABNORMAL
     Dosage: UNK, ONCE A DAY (0-0-0-1 )
     Route: 065
  7. CANDESARTAN. [Suspect]
     Active Substance: CANDESARTAN
     Dosage: UNK
     Route: 065
     Dates: start: 201902, end: 201905
  8. VALSARTAN DURA [Suspect]
     Active Substance: VALSARTAN
     Indication: PRODUCT USED FOR UNKNOWN INDICATION
     Dosage: 80 MILLIGRAM, ONCE A DAY
     Route: 065
     Dates: start: 201801, end: 20190208
  9. CANDESARTAN CILEXETIL. [Concomitant]
     Active Substance: CANDESARTAN CILEXETIL
     Indication: BLOOD PRESSURE ABNORMAL
     Dosage: UNK, ONCE A DAY, 1-0-0-0
     Route: 065
  10. METAMIZOLE SODIUM [Concomitant]
     Active Substance: METAMIZOLE SODIUM
     Indication: PAIN
     Dosage: UNK, AS NEEDED
     Route: 065
  11. METFORMIN HYDROCHLORIDE. [Concomitant]
     Active Substance: METFORMIN HYDROCHLORIDE
     Indication: BLOOD GLUCOSE ABNORMAL
     Dosage: UNK, TWO TIMES A DAY, 1-0-1-0
     Route: 065
  12. CANDESARTAN. [Suspect]
     Active Substance: CANDESARTAN
     Indication: PRODUCT USED FOR UNKNOWN INDICATION
     Dosage: UNK
     Route: 065
     Dates: start: 201905, end: 201911
  13. VALSARTAN. [Suspect]
     Active Substance: VALSARTAN
     Indication: PRODUCT USED FOR UNKNOWN INDICATION
     Dosage: 80 MILLIGRAM, QD
     Route: 065
     Dates: start: 201710, end: 201801
  14. ATORVASTATIN [Concomitant]
     Active Substance: ATORVASTATIN
     Indication: LIPIDS ABNORMAL
     Dosage: UNK, 0-0-0.5-0
     Route: 065
  15. PANTOPRAZOLE [Concomitant]
     Active Substance: PANTOPRAZOLE
     Indication: GASTROINTESTINAL DISORDER
     Dosage: UNK, 1-0-0-0 AS NEEDED
     Route: 065

REACTIONS (7)
  - Panic attack [Unknown]
  - Cerebrovascular accident [Unknown]
  - Mental impairment [Unknown]
  - Fear of disease [Unknown]
  - Atrial fibrillation [Unknown]
  - Depression [Unknown]
  - Loss of personal independence in daily activities [Unknown]

NARRATIVE: CASE EVENT DATE: 2018
